FAERS Safety Report 17372660 (Version 1)
Quarter: 2020Q1

REPORT INFORMATION
  Report Type: Spontaneous
  Country: US (occurrence: US)
  Receive Date: 20200205
  Receipt Date: 20200205
  Transmission Date: 20200409
  Serious: Yes (Other)
  Sender: FDA-Public Use
  Company Number: US-TARO PHARMACEUTICALS USA, INC.-2079863

PATIENT
  Sex: Female
  Weight: 50 kg

DRUGS (4)
  1. AMBIEN [Concomitant]
     Active Substance: ZOLPIDEM TARTRATE
  2. ZONISAMIDE. [Concomitant]
     Active Substance: ZONISAMIDE
  3. LAMOTRIGINE. [Suspect]
     Active Substance: LAMOTRIGINE
     Indication: DEPRESSION
     Route: 048
     Dates: start: 20191211
  4. CONCOMITANT MEDICATION USED FOR UNKNOWN INDICATION [Concomitant]

REACTIONS (6)
  - Seizure [Recovered/Resolved]
  - Tongue disorder [Recovered/Resolved]
  - Palpitations [Recovered/Resolved]
  - Product odour abnormal [Unknown]
  - Suicidal ideation [Recovered/Resolved]
  - Malaise [Recovered/Resolved]
